FAERS Safety Report 7620693-5 (Version None)
Quarter: 2011Q3

REPORT INFORMATION
  Report Type: 
  Country: None (occurrence: None)
  Receive Date: 20110719
  Receipt Date: 20110712
  Transmission Date: 20111222
  Serious: Yes (Disabling)
  Sender: FDA-Public Use
  Company Number: US-GLAXOSMITHKLINE-A0924758A

PATIENT
  Age: 64 Year
  Sex: Female
  Weight: 54.5 kg

DRUGS (3)
  1. MIRALAX [Concomitant]
  2. BARACLUDE [Concomitant]
     Indication: HEPATITIS B
     Dosage: .5MG PER DAY
  3. REQUIP [Suspect]
     Indication: RESTLESS LEGS SYNDROME
     Dosage: .25MG VARIABLE DOSE
     Route: 048
     Dates: start: 20100901

REACTIONS (5)
  - LIGAMENT RUPTURE [None]
  - CARPAL TUNNEL SYNDROME [None]
  - TARSAL TUNNEL SYNDROME [None]
  - TENDON RUPTURE [None]
  - TENDON DISORDER [None]
